FAERS Safety Report 18575134 (Version 3)
Quarter: 2021Q2

REPORT INFORMATION
  Report Type: Report from Study
  Country: GB (occurrence: GB)
  Receive Date: 20201203
  Receipt Date: 20210413
  Transmission Date: 20210717
  Serious: Yes (Other)
  Sender: FDA-Public Use
  Company Number: GB-PERRIGO-20GB016723

PATIENT

DRUGS (7)
  1. IMRALDI [Suspect]
     Active Substance: ADALIMUMAB
     Dosage: 160 MILLIGRAM WEEK ZERO
     Route: 058
     Dates: start: 20200709
  2. PARACETAMOL [Suspect]
     Active Substance: ACETAMINOPHEN
     Indication: PRODUCT USED FOR UNKNOWN INDICATION
     Dosage: UNKNOWN
     Route: 065
  3. IMRALDI [Suspect]
     Active Substance: ADALIMUMAB
     Dosage: 80 MILLIGRAM WEEK 2
     Route: 058
  4. FLUOXETINE [Suspect]
     Active Substance: FLUOXETINE HYDROCHLORIDE
     Indication: PRODUCT USED FOR UNKNOWN INDICATION
     Dosage: UNKNOWN
     Route: 065
  5. IMRALDI [Suspect]
     Active Substance: ADALIMUMAB
     Dosage: 40 MILLIGRAM WEEK 4
     Route: 058
  6. IMRALDI [Suspect]
     Active Substance: ADALIMUMAB
     Dosage: 40 MILLIGRAM, Q2W
     Route: 058
  7. IMRALDI [Suspect]
     Active Substance: ADALIMUMAB
     Dosage: 40 MILLIGRAM, QW
     Route: 058

REACTIONS (39)
  - Injection site erythema [Unknown]
  - Joint stiffness [Unknown]
  - Balance disorder [Unknown]
  - Dysstasia [Unknown]
  - Anxiety [Unknown]
  - Adverse drug reaction [Unknown]
  - Therapeutic product effect incomplete [Unknown]
  - Fibromyalgia [Unknown]
  - Poor quality sleep [Unknown]
  - Injection site pruritus [Unknown]
  - Disorientation [Unknown]
  - Fatigue [Unknown]
  - Drug interaction [Unknown]
  - Dyspnoea [Unknown]
  - Stress [Unknown]
  - Back disorder [Unknown]
  - Chronic fatigue syndrome [Unknown]
  - Feeling hot [Unknown]
  - Pain [Unknown]
  - Condition aggravated [Unknown]
  - Seasonal allergy [Unknown]
  - Hyperhidrosis [Unknown]
  - Spinal pain [Unknown]
  - Arthritis [Unknown]
  - Headache [Unknown]
  - Feeling abnormal [Unknown]
  - Dysphonia [Unknown]
  - Nausea [Unknown]
  - Malaise [Unknown]
  - Colitis ulcerative [Unknown]
  - Depressed mood [Unknown]
  - Intervertebral disc degeneration [Unknown]
  - Memory impairment [Unknown]
  - Paraesthesia [Unknown]
  - Post viral fatigue syndrome [Unknown]
  - Panic attack [Unknown]
  - Dizziness [Unknown]
  - Loss of personal independence in daily activities [Unknown]
  - Blood pressure increased [Unknown]

NARRATIVE: CASE EVENT DATE: 20200709
